FAERS Safety Report 6853724-0 (Version None)
Quarter: 2010Q3

REPORT INFORMATION
  Report Type: 
  Country: None (occurrence: None)
  Receive Date: 20100717
  Receipt Date: 20071218
  Transmission Date: 20110219
  Serious: No
  Sender: FDA-Public Use
  Company Number: US-PFIZER INC-2007106274

PATIENT
  Sex: Female
  Weight: 88.636 kg

DRUGS (2)
  1. CHANTIX [Suspect]
     Indication: SMOKING CESSATION THERAPY
     Route: 048
     Dates: start: 20071201
  2. LOVASTATIN [Concomitant]

REACTIONS (6)
  - ABDOMINAL DISCOMFORT [None]
  - DIARRHOEA [None]
  - FATIGUE [None]
  - INFLUENZA LIKE ILLNESS [None]
  - MYALGIA [None]
  - VOMITING [None]
